FAERS Safety Report 4324999-7 (Version None)
Quarter: 2004Q1

REPORT INFORMATION
  Report Type: 
  Country: None (occurrence: None)
  Receive Date: 20040326
  Receipt Date: 20040205
  Transmission Date: 20041129
  Serious: Yes (Death)
  Sender: FDA-Public Use
  Company Number: US-BRISTOL-MYERS SQUIBB COMPANY-12498036

PATIENT
  Age: 18 Year
  Sex: Female
  Weight: 86 kg

DRUGS (7)
  1. ABILIFY [Suspect]
     Indication: PSYCHOTIC DISORDER
     Dosage: INITIATED IN APR-2003 (7.5 MG/DAY), SLOWLY TITRATED UP TO 30 MG/DAY BY DEC-2003.
     Route: 048
     Dates: start: 20030408
  2. ABILIFY [Suspect]
     Indication: AGITATION
     Dosage: INITIATED IN APR-2003 (7.5 MG/DAY), SLOWLY TITRATED UP TO 30 MG/DAY BY DEC-2003.
     Route: 048
     Dates: start: 20030408
  3. ABILIFY [Suspect]
     Indication: BIPOLAR I DISORDER
     Dosage: INITIATED IN APR-2003 (7.5 MG/DAY), SLOWLY TITRATED UP TO 30 MG/DAY BY DEC-2003.
     Route: 048
     Dates: start: 20030408
  4. TRILEPTAL [Concomitant]
     Dosage: TAKEN FOR ^YEARS^ - DOSE RANGED FROM 150-750 MG
  5. RISPERDAL [Concomitant]
     Dosage: DOSE IN DEC-2003 INCREASED FROM 2 TO 3 MG/DAY
  6. CONTRACEPTIVE [Concomitant]
  7. MULTI-VITAMIN [Concomitant]

REACTIONS (3)
  - CONVULSION [None]
  - HEAD BANGING [None]
  - INJURY ASPHYXIATION [None]
